FAERS Safety Report 11624634 (Version 1)
Quarter: 2015Q4

REPORT INFORMATION
  Report Type: Spontaneous
  Country: US (occurrence: None)
  Receive Date: 20151009
  Receipt Date: 20151009
  Transmission Date: 20160304
  Serious: Yes (Other)
  Sender: FDA-Public Use
  Company Number: None

PATIENT
  Sex: Male

DRUGS (8)
  1. SENOLFIBRATE [Concomitant]
  2. METFORMAN [Concomitant]
  3. LOSART [Concomitant]
  4. COPAXONE [Suspect]
     Active Substance: GLATIRAMER ACETATE
     Indication: MULTIPLE SCLEROSIS
     Route: 058
     Dates: start: 20150218
  5. VITAMIN D [Concomitant]
     Active Substance: CHOLECALCIFEROL
  6. PRAVISTATIN [Concomitant]
  7. ASPRIN [Concomitant]
     Active Substance: ASPIRIN
  8. VITAMIN C [Concomitant]
     Active Substance: ASCORBIC ACID

REACTIONS (2)
  - Injection site abscess [None]
  - Staphylococcal infection [None]
